FAERS Safety Report 14659235 (Version 1)
Quarter: 2018Q1

REPORT INFORMATION
  Report Type: Report from Study
  Country: US (occurrence: US)
  Receive Date: 20180320
  Receipt Date: 20180320
  Transmission Date: 20180509
  Serious: Yes (Hospitalization)
  Sender: FDA-Public Use
  Company Number: US-EXELIXIS-CABO-18012518

PATIENT
  Age: 65 Year
  Sex: Male

DRUGS (19)
  1. PANTOPRAZOLE [Concomitant]
     Active Substance: PANTOPRAZOLE
  2. TIZANIDINE. [Concomitant]
     Active Substance: TIZANIDINE
  3. METHOCARBAMOL. [Concomitant]
     Active Substance: METHOCARBAMOL
  4. LACTOSE [Concomitant]
     Active Substance: LACTOSE
  5. ZINC. [Concomitant]
     Active Substance: ZINC
  6. ENEMEEZ [Concomitant]
     Active Substance: DOCUSATE SODIUM
  7. TAMSULOSIN [Concomitant]
     Active Substance: TAMSULOSIN
  8. DEXAMETHASONE. [Concomitant]
     Active Substance: DEXAMETHASONE
  9. SENNA [Concomitant]
     Active Substance: SENNA LEAF\SENNOSIDES\SENNOSIDES A AND B
  10. CABOMETYX [Suspect]
     Active Substance: CABOZANTINIB S-MALATE
     Indication: MALIGNANT NEOPLASM OF RENAL PELVIS
     Dosage: 60 MG, QD
     Route: 048
     Dates: start: 201802
  11. FLUTICASONE. [Concomitant]
     Active Substance: FLUTICASONE
  12. TRAZODONE [Concomitant]
     Active Substance: TRAZODONE HYDROCHLORIDE
  13. ATORVASTATIN [Concomitant]
     Active Substance: ATORVASTATIN
  14. DOK [Concomitant]
     Active Substance: DOCUSATE SODIUM
  15. VITAMIN D3 [Concomitant]
     Active Substance: CHOLECALCIFEROL
  16. GABAPENTIN. [Concomitant]
     Active Substance: GABAPENTIN
  17. OLMESARTAN MEDOXOMIL/HCTZ [Concomitant]
  18. MIRTAZAPINE. [Concomitant]
     Active Substance: MIRTAZAPINE
  19. FAMODITINE [Concomitant]

REACTIONS (3)
  - Adverse drug reaction [Unknown]
  - Vascular calcification [Unknown]
  - Dry skin [Unknown]

NARRATIVE: CASE EVENT DATE: 201802
